FAERS Safety Report 8361869-1 (Version None)
Quarter: 2012Q2

REPORT INFORMATION
  Report Type: 
  Country: None (occurrence: None)
  Receive Date: 20120514
  Receipt Date: 20120503
  Transmission Date: 20120825
  Serious: Yes (Hospitalization)
  Sender: FDA-Public Use
  Company Number: 2012SP016748

PATIENT
  Age: 61 Year
  Sex: Female
  Weight: 62 kg

DRUGS (4)
  1. CAPTOPRIL [Concomitant]
  2. REMERON [Suspect]
     Indication: DEPRESSION
     Dosage: QD;PO
     Route: 048
     Dates: start: 20120320, end: 20120325
  3. CLONAZEPAM [Concomitant]
  4. CITALOPRAM HYDROBROMIDE [Concomitant]

REACTIONS (13)
  - ABDOMINAL PAIN [None]
  - HEADACHE [None]
  - OPEN WOUND [None]
  - NAUSEA [None]
  - CONSTIPATION [None]
  - CONFUSIONAL STATE [None]
  - PHARYNGITIS [None]
  - NECK MASS [None]
  - HALLUCINATION [None]
  - SENSORY DISTURBANCE [None]
  - OLIGURIA [None]
  - INCREASED APPETITE [None]
  - ABDOMINAL DISTENSION [None]
